FAERS Safety Report 7967168-1 (Version None)
Quarter: 2011Q4

REPORT INFORMATION
  Report Type: 
  Country: None (occurrence: None)
  Receive Date: 20111209
  Receipt Date: 20111130
  Transmission Date: 20120403
  Serious: Yes (Other)
  Sender: FDA-Public Use
  Company Number: US-JNJFOC-20111201070

PATIENT
  Sex: Male

DRUGS (1)
  1. REMICADE [Suspect]
     Indication: COLITIS ULCERATIVE
     Route: 042
     Dates: end: 20111114

REACTIONS (6)
  - FEELING COLD [None]
  - PALLOR [None]
  - DIZZINESS [None]
  - CHILLS [None]
  - FLUSHING [None]
  - HYPERHIDROSIS [None]
